FAERS Safety Report 4284517-9 (Version None)
Quarter: 2004Q1

REPORT INFORMATION
  Report Type: 
  Country: None (occurrence: None)
  Receive Date: 20040130
  Receipt Date: 20040113
  Transmission Date: 20041129
  Serious: Yes (Other)
  Sender: FDA-Public Use
  Company Number: USA040156504

PATIENT
  Age: 70 Year
  Sex: Female

DRUGS (2)
  1. EVISTA [Suspect]
     Dates: start: 19980101, end: 20010101
  2. LIPITOR [Concomitant]

REACTIONS (6)
  - BONE DENSITY DECREASED [None]
  - DYSPEPSIA [None]
  - GASTROOESOPHAGEAL REFLUX DISEASE [None]
  - OESOPHAGEAL DISORDER [None]
  - RETINAL TEAR [None]
  - VITREOUS FLOATERS [None]
